FAERS Safety Report 5006491-X (Version None)
Quarter: 2006Q2

REPORT INFORMATION
  Report Type: 
  Country: None (occurrence: None)
  Receive Date: 20060516
  Receipt Date: 20060428
  Transmission Date: 20061013
  Serious: Yes (Hospitalization)
  Sender: FDA-Public Use
  Company Number: JP_050406352

PATIENT
  Age: 16 Year
  Sex: Male

DRUGS (1)
  1. SOMATROPIN (SOMATROPIN) [Suspect]
     Indication: DWARFISM

REACTIONS (4)
  - BONE DENSITY DECREASED [None]
  - FALL [None]
  - HUMERUS FRACTURE [None]
  - JOINT DISLOCATION [None]
